FAERS Safety Report 9493275 (Version 2)
Quarter: 2013Q3

REPORT INFORMATION
  Report Type: Report from Study
  Country: US (occurrence: US)
  Receive Date: 20130902
  Receipt Date: 20130902
  Transmission Date: 20140515
  Serious: Yes (Hospitalization)
  Sender: FDA-Public Use
  Company Number: PHHO2010US08702

PATIENT
  Age: 85 Year
  Sex: Male
  Weight: 100.5 kg

DRUGS (1)
  1. ALISKIREN [Suspect]
     Indication: CARDIOVASCULAR DISORDER
     Route: 048
     Dates: start: 20090420, end: 20100128

REACTIONS (10)
  - Productive cough [Recovered/Resolved]
  - Crepitations [Recovered/Resolved]
  - Acute myocardial infarction [Recovered/Resolved]
  - Fatigue [Recovered/Resolved]
  - Malaise [Recovered/Resolved]
  - Abdominal pain [Recovered/Resolved]
  - Dyspnoea [Recovered/Resolved]
  - Abdominal tenderness [Recovered/Resolved]
  - Acute coronary syndrome [Recovered/Resolved]
  - Disease progression [Recovered/Resolved]
